FAERS Safety Report 9026071 (Version 1)
Quarter: 2012Q4

REPORT INFORMATION
  Report Type: Spontaneous
  Country: US (occurrence: None)
  Receive Date: 20121217
  Receipt Date: 20121217
  Transmission Date: 20130627
  Serious: Yes (Other)
  Sender: FDA-Public Use
  Company Number: None

PATIENT
  Age: 52 Year
  Sex: Female
  Weight: 65.77 kg

DRUGS (3)
  1. MELOXICAM 15 MG. MFG. LUPIN [Suspect]
     Indication: ROTATOR CUFF TEAR
     Dates: start: 20121113, end: 20121114
  2. MELOXICAM 15 MG. MFG. LUPIN [Suspect]
     Indication: ARTHRITIS
     Dates: start: 20121113, end: 20121114
  3. MOTRIN [Concomitant]

REACTIONS (7)
  - Nausea [None]
  - Dysphonia [None]
  - Nasopharyngitis [None]
  - Pain [None]
  - Hypoaesthesia [None]
  - Paraesthesia [None]
  - Middle insomnia [None]
